FAERS Safety Report 16926500 (Version 2)
Quarter: 2019Q4

REPORT INFORMATION
  Report Type: Spontaneous
  Country: US (occurrence: US)
  Receive Date: 20191016
  Receipt Date: 20191115
  Transmission Date: 20200122
  Serious: No
  Sender: FDA-Public Use
  Company Number: US-SA-2019SA282055

PATIENT
  Age: 74 Year
  Sex: Female

DRUGS (1)
  1. AVAPRO [Suspect]
     Active Substance: IRBESARTAN
     Dosage: 300 MG, UNK
     Route: 065

REACTIONS (3)
  - Product availability issue [Unknown]
  - Product dose omission [Unknown]
  - Blood pressure increased [Unknown]
